FAERS Safety Report 10404351 (Version 1)
Quarter: 2014Q1

REPORT INFORMATION
  Report Type: Spontaneous
  Country: US (occurrence: None)
  Receive Date: 20140228
  Receipt Date: 20140228
  Transmission Date: 20141002
  Serious: No
  Sender: FDA-Public Use
  Company Number: 225281 LEO

PATIENT
  Age: 50 Year
  Sex: Female

DRUGS (4)
  1. PICATO (INGENOL MEBUTATE) (0.015 %) [Suspect]
     Indication: SKIN CANCER
     Dosage: ONCE DAILY FOR 3 DAYS,
     Route: 061
     Dates: start: 20140109, end: 20140109
  2. PICATO (INGENOL MEBUTATE) (0.015 %) [Suspect]
     Indication: PROPHYLAXIS
     Dosage: ONCE DAILY FOR 3 DAYS,
     Route: 061
     Dates: start: 20140109, end: 20140109
  3. XANAX(ALPRAZOLAM) [Concomitant]
  4. NUVARING(NUVARING) [Concomitant]

REACTIONS (7)
  - Application site pain [None]
  - Pain [None]
  - Application site reaction [None]
  - Application site erythema [None]
  - Application site vesicles [None]
  - Drug administered at inappropriate site [None]
  - Incorrect drug administration duration [None]
